FAERS Safety Report 7231017-X (Version None)
Quarter: 2011Q1

REPORT INFORMATION
  Report Type: 
  Country: None (occurrence: None)
  Receive Date: 20110118
  Receipt Date: 20110110
  Transmission Date: 20110831
  Serious: Yes (Death, Other)
  Sender: FDA-Public Use
  Company Number: FR-ROCHE-752657

PATIENT

DRUGS (2)
  1. PEGINTERFERON ALFA-2A [Suspect]
     Dosage: FOR 12 WEEKS
     Route: 065
  2. IMATINIB [Suspect]
     Route: 065

REACTIONS (6)
  - NEUTROPENIA [None]
  - ACUTE GRAFT VERSUS HOST DISEASE [None]
  - MENTAL DISORDER [None]
  - THROMBOCYTOPENIA [None]
  - DRUG INTOLERANCE [None]
  - GENE MUTATION [None]
